FAERS Safety Report 8374690-5 (Version None)
Quarter: 2012Q2

REPORT INFORMATION
  Report Type: 
  Country: None (occurrence: None)
  Receive Date: 20120521
  Receipt Date: 20120316
  Transmission Date: 20120825
  Serious: No
  Sender: FDA-Public Use
  Company Number: US-ASTRAZENECA-2012SE20659

PATIENT
  Sex: Male

DRUGS (1)
  1. PRILOSEC OTC [Suspect]
     Indication: ABDOMINAL PAIN UPPER
     Route: 048
     Dates: end: 20120312

REACTIONS (2)
  - THIRST [None]
  - CHEST PAIN [None]
